FAERS Safety Report 5564486-1 (Version None)
Quarter: 2007Q4

REPORT INFORMATION
  Report Type: 
  Country: None (occurrence: None)
  Receive Date: 20071212
  Receipt Date: 20071203
  Transmission Date: 20080405
  Serious: Yes (Hospitalization)
  Sender: FDA-Public Use
  Company Number: 2007P1000721

PATIENT
  Age: 5 Year
  Sex: Male

DRUGS (2)
  1. BUSULFAN (BUSULFAN) [Suspect]
     Indication: STEM CELL TRANSPLANT
     Dosage: 9.8 ML; QD; IV
     Route: 042
     Dates: start: 20070119, end: 20070120
  2. FLUDARABINE PHOSPHATE [Concomitant]

REACTIONS (4)
  - CYTOMEGALOVIRUS CHORIORETINITIS [None]
  - MALAISE [None]
  - NAUSEA [None]
  - SEPSIS [None]
